FAERS Safety Report 12257948 (Version 1)
Quarter: 2016Q2

REPORT INFORMATION
  Report Type: Spontaneous
  Country: US (occurrence: US)
  Receive Date: 20160412
  Receipt Date: 20160412
  Transmission Date: 20160815
  Serious: Yes (Hospitalization)
  Sender: FDA-Public Use
  Company Number: US-VERTEX PHARMACEUTICALS-2016-002315

PATIENT
  Sex: Male

DRUGS (10)
  1. XIFAXAN [Concomitant]
     Active Substance: RIFAXIMIN
  2. VITAMIN C [Concomitant]
     Active Substance: ASCORBIC ACID
  3. KRILL OIL [Concomitant]
     Active Substance: DIETARY SUPPLEMENT
  4. AZITHROMYCIN ANHYDROUS. [Concomitant]
     Active Substance: AZITHROMYCIN ANHYDROUS
  5. CALCIUM [Concomitant]
     Active Substance: CALCIUM
  6. MULTIVITAMIN [Concomitant]
     Active Substance: VITAMINS
  7. PROBIOTIC [Concomitant]
     Active Substance: PROBIOTICS NOS
  8. VITAMIN A [Concomitant]
     Active Substance: VITAMIN A
  9. KALYDECO [Suspect]
     Active Substance: IVACAFTOR
     Indication: CYSTIC FIBROSIS
     Dosage: 150 MG, BID
     Route: 048
     Dates: start: 20150903, end: 201604
  10. IRON [Concomitant]
     Active Substance: IRON

REACTIONS (1)
  - Liver disorder [Unknown]
